FAERS Safety Report 25402046 (Version 3)
Quarter: 2025Q3

REPORT INFORMATION
  Report Type: Spontaneous
  Country: EU (occurrence: EU)
  Receive Date: 20250605
  Receipt Date: 20250802
  Transmission Date: 20251020
  Serious: Yes (Death, Hospitalization)
  Sender: ALEXION PHARMACEUTICALS
  Company Number: None

PATIENT
  Age: 68 Year
  Sex: Male

DRUGS (3)
  1. ULTOMIRIS [Suspect]
     Active Substance: RAVULIZUMAB-CWVZ
     Dosage: 3300 MILLIGRAM, Q2W
     Dates: start: 20250207, end: 20250214
  2. MABTHERA [Suspect]
     Active Substance: RITUXIMAB
     Indication: Immune-mediated myasthenia gravis
     Dates: start: 20241229, end: 20241229
  3. PREDNISONE [Suspect]
     Active Substance: PREDNISONE
     Indication: Immune-mediated myasthenia gravis
     Dosage: 90 MILLIGRAM, QD
     Dates: start: 20241031

REACTIONS (3)
  - Scedosporium infection [Fatal]
  - Pneumonia pseudomonal [Fatal]
  - Device related infection [Fatal]

NARRATIVE: CASE EVENT DATE: 20250227
